FAERS Safety Report 24315036 (Version 1)
Quarter: 2024Q3

REPORT INFORMATION
  Report Type: Spontaneous
  Country: JP (occurrence: JP)
  Receive Date: 20240913
  Receipt Date: 20240913
  Transmission Date: 20241017
  Serious: No
  Sender: ASTELLAS
  Company Number: JP-ASTELLAS-2024-AER-005175

PATIENT
  Age: 8 Year

DRUGS (2)
  1. VESICARE [Suspect]
     Active Substance: SOLIFENACIN SUCCINATE
     Indication: Enuresis
     Route: 048
  2. VESICARE [Suspect]
     Active Substance: SOLIFENACIN SUCCINATE
     Route: 048

REACTIONS (2)
  - Product use in unapproved indication [Unknown]
  - Off label use [Unknown]
